FAERS Safety Report 10195084 (Version 1)
Quarter: 2014Q2

REPORT INFORMATION
  Report Type: Report from Study
  Country: AR (occurrence: AR)
  Receive Date: 20140526
  Receipt Date: 20140526
  Transmission Date: 20141212
  Serious: Yes (Death)
  Sender: FDA-Public Use
  Company Number: PHHY2014AR063269

PATIENT
  Age: 84 Year
  Sex: Female

DRUGS (2)
  1. GALVUS MET [Suspect]
     Dosage: 1 DF (850/50 MG), DAILY
     Route: 048
  2. DIOVAN D [Suspect]
     Dosage: 1 DF (160/ UNKNOWN MG), DAILY
     Route: 048

REACTIONS (6)
  - Cardio-respiratory arrest [Fatal]
  - Osteoporosis [Unknown]
  - Hypokinesia [Unknown]
  - Renal disorder [Unknown]
  - Depression [Unknown]
  - Hypoglycaemia [Unknown]
